FAERS Safety Report 6019872-2 (Version None)
Quarter: 2008Q4

REPORT INFORMATION
  Report Type: 
  Country: None (occurrence: None)
  Receive Date: 20081222
  Receipt Date: 20081210
  Transmission Date: 20090506
  Serious: Yes (Hospitalization)
  Sender: FDA-Public Use
  Company Number: 230765K08USA

PATIENT
  Age: 50 Year
  Sex: Female
  Weight: 53 kg

DRUGS (7)
  1. REBIF [Suspect]
     Indication: MULTIPLE SCLEROSIS
     Dosage: 22 MCG, NOT REPORTED, NOT REPORTED, 44 MCG, 3 IN 1 WEEKS, SUBCUTANEOUS, 8.8 MCG, 3 IN 1 WEEKS, SUBCU
     Route: 058
     Dates: start: 20080623, end: 20080720
  2. REBIF [Suspect]
     Indication: MULTIPLE SCLEROSIS
     Dosage: 22 MCG, NOT REPORTED, NOT REPORTED, 44 MCG, 3 IN 1 WEEKS, SUBCUTANEOUS, 8.8 MCG, 3 IN 1 WEEKS, SUBCU
     Route: 058
     Dates: start: 20080721, end: 20080722
  3. REBIF [Suspect]
     Indication: MULTIPLE SCLEROSIS
     Dosage: 22 MCG, NOT REPORTED, NOT REPORTED, 44 MCG, 3 IN 1 WEEKS, SUBCUTANEOUS, 8.8 MCG, 3 IN 1 WEEKS, SUBCU
     Route: 058
     Dates: start: 20081023, end: 20081101
  4. IBUPROFEN [Concomitant]
  5. LEXAPRO [Concomitant]
  6. ENABLEX (DARIFENACIN) [Concomitant]
  7. NORFLEX [Concomitant]

REACTIONS (9)
  - CONDITION AGGRAVATED [None]
  - FOOT FRACTURE [None]
  - IMPAIRED HEALING [None]
  - INCORRECT DOSE ADMINISTERED [None]
  - JOINT SPRAIN [None]
  - MULTIPLE SCLEROSIS [None]
  - PARALYSIS [None]
  - PERONEAL NERVE PALSY [None]
  - URINARY INCONTINENCE [None]
